FAERS Safety Report 7431040-6 (Version None)
Quarter: 2011Q2

REPORT INFORMATION
  Report Type: 
  Country: None (occurrence: None)
  Receive Date: 20110421
  Receipt Date: 20110418
  Transmission Date: 20111010
  Serious: Yes (Other)
  Sender: FDA-Public Use
  Company Number: US-PFIZER INC-2011084448

PATIENT
  Age: 64 Year
  Sex: Male

DRUGS (14)
  1. ALLOPURINOL [Concomitant]
  2. NPH INSULIN [Concomitant]
     Dosage: 25 U NIGHTLY
  3. LINEZOLID [Suspect]
     Dosage: 600 MG, BID
     Route: 048
  4. CITALOPRAM [Concomitant]
  5. NPH INSULIN [Concomitant]
     Dosage: 35 U EVERY MORNING
  6. GLYBURIDE [Concomitant]
     Dosage: 5 MG, BID
  7. AMLODIPINE BESILATE [Concomitant]
  8. COLCHICINE [Concomitant]
  9. LISINOPRIL [Concomitant]
     Dosage: UNK
  10. CARVEDILOL [Concomitant]
  11. GLYBURIDE [Concomitant]
     Dosage: 2.5  MG, BID
  12. METFORMIN [Concomitant]
     Dosage: 1000 MG, BID
  13. WARFARIN [Concomitant]
  14. PRAVASTATIN [Concomitant]

REACTIONS (1)
  - HYPOGLYCAEMIA [None]
